FAERS Safety Report 25866938 (Version 2)
Quarter: 2025Q4

REPORT INFORMATION
  Report Type: Spontaneous
  Country: US (occurrence: US)
  Receive Date: 20251001
  Receipt Date: 20251110
  Transmission Date: 20260118
  Serious: Yes (Disabling, Other)
  Sender: CIPLA
  Company Number: US-CIPLA (EU) LIMITED-2025US09309

PATIENT

DRUGS (5)
  1. CARBOPLATIN [Suspect]
     Active Substance: CARBOPLATIN
     Indication: Ovarian cancer
     Dosage: UNK (7 CYCLES)
     Route: 065
  2. CARBOPLATIN [Suspect]
     Active Substance: CARBOPLATIN
     Indication: Ovarian cancer stage III
     Dosage: UNK (DOSE REDUCED STARTING CYCLE 3)
     Route: 065
  3. CARBOPLATIN [Suspect]
     Active Substance: CARBOPLATIN
     Dosage: UNK
     Route: 065
  4. PACLITAXEL [Suspect]
     Active Substance: PACLITAXEL
     Indication: Ovarian cancer
     Dosage: UNK (7 CYCLES)
     Route: 065
  5. PACLITAXEL [Suspect]
     Active Substance: PACLITAXEL
     Indication: Ovarian cancer stage III

REACTIONS (2)
  - Ototoxicity [Unknown]
  - Neutropenia [Unknown]
